FAERS Safety Report 18599892 (Version 1)
Quarter: 2020Q4

REPORT INFORMATION
  Report Type: Report from Study
  Country: GB (occurrence: GB)
  Receive Date: 20201210
  Receipt Date: 20201210
  Transmission Date: 20210114
  Serious: Yes (Hospitalization)
  Sender: FDA-Public Use
  Company Number: GB-BAYER-2020-248605

PATIENT
  Age: 74 Year
  Sex: Male
  Weight: 99 kg

DRUGS (1)
  1. APROTININ 10,000 KIU/ML INJECTION BP (APROTININ) [Suspect]
     Active Substance: APROTININ
     Indication: HEART VALVE REPLACEMENT
     Dosage: 500 MILLILITRE EVERY 1 DAY(S) LOADING DOSE 2 MILLION KIU PUMP PRIMING DOSE 3 MILLION KIU CONTINUOUS
     Route: 065

REACTIONS (3)
  - Blood creatinine increased [Recovering/Resolving]
  - Off label use [None]
  - Product use in unapproved indication [Unknown]

NARRATIVE: CASE EVENT DATE: 20190504
